FAERS Safety Report 8685041 (Version 2)
Quarter: 2013Q2

REPORT INFORMATION
  Report Type: Spontaneous
  Country: US (occurrence: None)
  Receive Date: 20120411
  Receipt Date: 20120713
  Transmission Date: 20140414
  Serious: No
  Sender: FDA-Public Use
  Company Number: PHEH2012US005829

PATIENT
  Age: 65 Year
  Sex: Female

DRUGS (14)
  1. ILARIS [Suspect]
     Indication: FAMILIAL COLD AUTOINFLAMMATORY SYNDROME
     Route: 058
     Dates: start: 20091101
  2. PRAVASTATIN [Concomitant]
  3. METOPROLOL TARTRATE [Concomitant]
  4. CALCIUM CARBONATE [Concomitant]
  5. MAGNESIUM (MAGNESIUM) [Concomitant]
  6. LANSOPRAZOLE (LANSOPRAZOLE) [Concomitant]
  7. FEXOFENADINE [Concomitant]
  8. ASA (ACETYLSALICYLIC ACID) [Concomitant]
  9. FORTICAL [Concomitant]
  10. ARMOUR THYROID [Concomitant]
  11. AMBIEN [Concomitant]
  12. PREVACID (LANSOPRAZOLE) [Concomitant]
  13. MIACALCIN (CALCITONIN, SALMON) [Concomitant]
  14. ALLERGY MEDICATION (NO INGREDIENTS/SUBSTANCES) [Concomitant]

REACTIONS (4)
  - MYALGIA [None]
  - ARTHRALGIA [None]
  - INFLUENZA LIKE ILLNESS [None]
  - FEELING ABNORMAL [None]
